FAERS Safety Report 18829886 (Version 1)
Quarter: 2021Q1

REPORT INFORMATION
  Report Type: Spontaneous
  Country: US (occurrence: US)
  Receive Date: 20210201
  Receipt Date: 20210201
  Transmission Date: 20210419
  Serious: No
  Sender: FDA-Public Use
  Company Number: US-ABBVIE-20K-163-3620126-00

PATIENT
  Age: 52 Year
  Sex: Female
  Weight: 77.18 kg

DRUGS (9)
  1. VITAMIN D [Concomitant]
     Active Substance: VITAMIN D NOS
     Indication: SUPPLEMENTATION THERAPY
  2. HUMIRA [Suspect]
     Active Substance: ADALIMUMAB
     Indication: ANKYLOSING SPONDYLITIS
     Dosage: INITIAL
     Route: 058
     Dates: start: 20200908, end: 20200908
  3. HUMIRA [Suspect]
     Active Substance: ADALIMUMAB
     Route: 058
     Dates: start: 20200908
  4. NABUMETONE. [Concomitant]
     Active Substance: NABUMETONE
     Indication: INFLAMMATION
  5. TIZANIDINE. [Concomitant]
     Active Substance: TIZANIDINE
     Indication: MYALGIA
  6. BIOTIN [Concomitant]
     Active Substance: BIOTIN
     Indication: SUPPLEMENTATION THERAPY
  7. TYLENOL ARTHRITIS PAIN [Concomitant]
     Active Substance: ACETAMINOPHEN
     Indication: PAIN
  8. MONTELUKAST [Concomitant]
     Active Substance: MONTELUKAST SODIUM
     Indication: SINUS DISORDER
  9. LINZESS [Concomitant]
     Active Substance: LINACLOTIDE
     Indication: CONSTIPATION

REACTIONS (6)
  - Incorrect dose administered [Recovered/Resolved]
  - Headache [Recovered/Resolved]
  - Injection site haemorrhage [Recovered/Resolved]
  - Headache [Recovered/Resolved]
  - Injection site pain [Recovered/Resolved]
  - Device issue [Recovered/Resolved]

NARRATIVE: CASE EVENT DATE: 20200908
